FAERS Safety Report 5322019-9 (Version None)
Quarter: 2007Q2

REPORT INFORMATION
  Report Type: 
  Country: None (occurrence: None)
  Receive Date: 20070511
  Receipt Date: 20070507
  Transmission Date: 20071010
  Serious: Yes (Hospitalization)
  Sender: FDA-Public Use
  Company Number: JP-SP-2007-01102

PATIENT
  Age: 77 Year
  Sex: Female

DRUGS (2)
  1. IMMUCYST [Suspect]
     Indication: BLADDER CANCER
     Route: 043
     Dates: start: 20070126, end: 20070316
  2. IMMUCYST [Suspect]
     Route: 043
     Dates: start: 20070126, end: 20070316

REACTIONS (2)
  - URGE INCONTINENCE [None]
  - UVEITIS [None]
